FAERS Safety Report 7485425-2 (Version None)
Quarter: 2011Q2

REPORT INFORMATION
  Report Type: 
  Country: None (occurrence: None)
  Receive Date: 20110517
  Receipt Date: 20110506
  Transmission Date: 20111010
  Serious: Yes (Hospitalization)
  Sender: FDA-Public Use
  Company Number: SG-EISAI INC-E7389-00965-CLI-SG

PATIENT
  Sex: Female
  Weight: 45 kg

DRUGS (6)
  1. EPIRUBICIN HYDROCHLORIDE [Suspect]
     Indication: NON-SMALL CELL LUNG CANCER
     Route: 041
     Dates: start: 20100628
  2. TRAMADOL HYDROCHLORIDE [Concomitant]
     Indication: PAIN
     Route: 048
     Dates: start: 20100622
  3. ACETAMINOPHEN [Concomitant]
     Indication: PAIN
     Route: 048
     Dates: start: 20100622
  4. LACTULOSE [Concomitant]
     Indication: CONSTIPATION
     Route: 048
     Dates: start: 20100615
  5. LAMIVUDINE [Concomitant]
     Route: 048
     Dates: start: 20100105
  6. MULTI-VITAMIN [Concomitant]
     Route: 048
     Dates: start: 20100107

REACTIONS (1)
  - NEUTROPENIC SEPSIS [None]
